FAERS Safety Report 25859201 (Version 4)
Quarter: 2025Q4

REPORT INFORMATION
  Report Type: Report from Study
  Country: EU (occurrence: EU)
  Receive Date: 20250929
  Receipt Date: 20251009
  Transmission Date: 20260117
  Serious: Yes (Other)
  Sender: ABBVIE
  Company Number: EU-ABBVIE-6469477

PATIENT
  Age: 65 Year
  Sex: Male

DRUGS (3)
  1. FOSCARBIDOPA\FOSLEVODOPA [Suspect]
     Active Substance: FOSCARBIDOPA\FOSLEVODOPA
     Indication: Parkinson^s disease
     Dosage: CR: 0.17 ML/H, CRN: 0.15 ML/HM CRH: 0.17 ML/H, ED: 0.15
     Route: 058
     Dates: start: 20250916, end: 20250917
  2. FOSCARBIDOPA\FOSLEVODOPA [Suspect]
     Active Substance: FOSCARBIDOPA\FOSLEVODOPA
     Dosage: CR: 0.18 ML/H, CRN: 0.15 ML/H, CRH: 0.18 ML/H, ED: 0.15 ML
     Route: 058
     Dates: start: 20250918
  3. FOSCARBIDOPA\FOSLEVODOPA [Suspect]
     Active Substance: FOSCARBIDOPA\FOSLEVODOPA
     Dosage: CR: 0.18 ML/H, CRN: 0.18 ML/H, CRH: 0,18 ML/H, ED: 0.15 ML
     Route: 058
     Dates: start: 20250917, end: 20250918

REACTIONS (6)
  - Surgery [Unknown]
  - Hypokinesia [Recovered/Resolved]
  - Infusion site induration [Recovering/Resolving]
  - Tremor [Recovered/Resolved]
  - Infusion site erythema [Recovering/Resolving]
  - Infusion site inflammation [Recovering/Resolving]

NARRATIVE: CASE EVENT DATE: 20250101
